FAERS Safety Report 18456183 (Version 3)
Quarter: 2021Q1

REPORT INFORMATION
  Report Type: Report from Study
  Country: None (occurrence: US)
  Receive Date: 20201103
  Receipt Date: 20210107
  Transmission Date: 20210419
  Serious: Yes (Other)
  Sender: FDA-Public Use
  Company Number: US-ABBVIE-20K-163-3629411-00

PATIENT
  Age: 38 Year
  Sex: Female
  Weight: 147.1 kg

DRUGS (21)
  1. METHOTREXATE. [Suspect]
     Active Substance: METHOTREXATE
     Indication: PRODUCT USED FOR UNKNOWN INDICATION
     Route: 065
  2. XANAX [Concomitant]
     Active Substance: ALPRAZOLAM
     Indication: ANXIETY
  3. ZYRTEC [Concomitant]
     Active Substance: CETIRIZINE HYDROCHLORIDE
     Indication: HYPERSENSITIVITY
  4. PANTOPRAZOLE [Concomitant]
     Active Substance: PANTOPRAZOLE
     Indication: GASTROOESOPHAGEAL REFLUX DISEASE
  5. METFORMIN [Concomitant]
     Active Substance: METFORMIN HYDROCHLORIDE
     Indication: TYPE 2 DIABETES MELLITUS
  6. HUMIRA [Suspect]
     Active Substance: ADALIMUMAB
     Indication: PSORIATIC ARTHROPATHY
     Route: 058
     Dates: start: 202002, end: 202012
  7. BUMEX [Concomitant]
     Active Substance: BUMETANIDE
     Indication: DIURETIC THERAPY
  8. CHLOR?TRIMETON [Concomitant]
     Active Substance: CHLORPHENIRAMINE MALEATE
     Indication: HYPERSENSITIVITY
  9. SYNTHROID [Suspect]
     Active Substance: LEVOTHYROXINE SODIUM
     Indication: HYPOTHYROIDISM
     Route: 048
     Dates: start: 201908
  10. GABAPENTIN. [Concomitant]
     Active Substance: GABAPENTIN
     Indication: PAIN
  11. ZOLOFT [Concomitant]
     Active Substance: SERTRALINE HYDROCHLORIDE
     Indication: DEPRESSION
  12. ROPINIROLE. [Concomitant]
     Active Substance: ROPINIROLE
     Indication: RESTLESSNESS
  13. TRAZODONE [Concomitant]
     Active Substance: TRAZODONE HYDROCHLORIDE
     Indication: SEDATIVE THERAPY
  14. HUMIRA [Suspect]
     Active Substance: ADALIMUMAB
     Indication: PSORIASIS
     Route: 058
     Dates: start: 202012
  15. VITAMIN D2 [Concomitant]
     Active Substance: ERGOCALCIFEROL
     Indication: VITAMIN D DEFICIENCY
  16. GABAPENTIN. [Concomitant]
     Active Substance: GABAPENTIN
     Indication: NEUROPATHY PERIPHERAL
  17. FLUOCINOLONE ACETONIDE. [Concomitant]
     Active Substance: FLUOCINOLONE ACETONIDE
     Indication: PSORIASIS
  18. HUMIRA [Suspect]
     Active Substance: ADALIMUMAB
     Indication: ANKYLOSING SPONDYLITIS
  19. LISINOPRIL. [Concomitant]
     Active Substance: LISINOPRIL
     Indication: HYPERTENSION
  20. ALLOPURINOL. [Concomitant]
     Active Substance: ALLOPURINOL
     Indication: GOUT
  21. PREDNISONE. [Concomitant]
     Active Substance: PREDNISONE
     Indication: ALLERGY PROPHYLAXIS

REACTIONS (21)
  - Tonsillolith [Recovered/Resolved]
  - Feeling abnormal [Recovering/Resolving]
  - Feeling abnormal [Recovered/Resolved]
  - Hepatic steatosis [Not Recovered/Not Resolved]
  - Therapeutic product effect incomplete [Not Recovered/Not Resolved]
  - Scar [Not Recovered/Not Resolved]
  - Weight increased [Recovered/Resolved]
  - Hypotension [Recovered/Resolved]
  - Pharyngeal swelling [Recovered/Resolved]
  - Sleep apnoea syndrome [Unknown]
  - Tonsillar hypertrophy [Recovering/Resolving]
  - Dysphagia [Recovered/Resolved]
  - Respiratory disorder [Unknown]
  - Post procedural complication [Unknown]
  - Weight increased [Not Recovered/Not Resolved]
  - Infection [Recovered/Resolved]
  - Oxygen saturation decreased [Recovered/Resolved]
  - Heart rate increased [Unknown]
  - Dysphagia [Recovering/Resolving]
  - Tonsillar disorder [Recovered/Resolved]
  - Blood glucose decreased [Recovered/Resolved]

NARRATIVE: CASE EVENT DATE: 2019
